FAERS Safety Report 8796380 (Version 1)
Quarter: 2012Q4

REPORT INFORMATION
  Report Type: 
  Country: US (occurrence: US)
  Receive Date: 20120919
  Receipt Date: 20120919
  Transmission Date: 20130627
  Serious: Yes (Hospitalization)
  Sender: FDA-Public Use
  Company Number: US-JNJFOC-20120906967

PATIENT
  Age: 77 Year
  Sex: Male

DRUGS (6)
  1. ZYTIGA [Suspect]
     Indication: PROSTATE CANCER
     Route: 065
     Dates: start: 20120830, end: 20120908
  2. VERAPAMIL [Concomitant]
  3. LOSARTAN [Concomitant]
  4. PREDNISONE [Concomitant]
     Route: 048
  5. VITAMIN C [Concomitant]
  6. CALCIUM [Concomitant]

REACTIONS (5)
  - Haematuria [Recovered/Resolved]
  - Haemorrhage urinary tract [Recovered/Resolved]
  - Aphasia [Unknown]
  - Hypertension [Unknown]
  - Cerebrovascular accident [Unknown]
